FAERS Safety Report 6915487-X (Version None)
Quarter: 2010Q3

REPORT INFORMATION
  Report Type: 
  Country: None (occurrence: None)
  Receive Date: 20100806
  Receipt Date: 20100806
  Transmission Date: 20110219
  Serious: No
  Sender: FDA-Public Use
  Company Number: None

PATIENT
  Age: 71 Year
  Sex: Male
  Weight: 91.2 kg

DRUGS (1)
  1. LISINOPRIL [Suspect]
     Dates: start: 20090806, end: 20100201

REACTIONS (2)
  - COUGH [None]
  - WHEEZING [None]
